FAERS Safety Report 14376047 (Version 8)
Quarter: 2018Q3

REPORT INFORMATION
  Report Type: Spontaneous
  Country: CA (occurrence: CA)
  Receive Date: 20180111
  Receipt Date: 20180906
  Transmission Date: 20181010
  Serious: Yes (Other)
  Sender: FDA-Public Use
  Company Number: CA-CELLTRION INC.-2017CA014888

PATIENT

DRUGS (11)
  1. INFLECTRA [Suspect]
     Active Substance: INFLIXIMAB-DYYB
     Dosage: 400 MG, CYCLIC, EVERY 4 WEEKS
     Route: 042
     Dates: start: 20171114
  2. INFLECTRA [Suspect]
     Active Substance: INFLIXIMAB-DYYB
     Dosage: 500 MG, CYCLIC, EVERY 4 WEEKS
     Route: 042
     Dates: start: 20171211
  3. INFLECTRA [Suspect]
     Active Substance: INFLIXIMAB-DYYB
     Dosage: 500 MG, CYCLIC, EVERY 4 WEEKS
     Route: 042
     Dates: start: 20180726
  4. INFLECTRA [Suspect]
     Active Substance: INFLIXIMAB-DYYB
     Dosage: 500 MG, CYCLIC, EVERY 4 WEEKS
     Route: 042
     Dates: start: 20180308
  5. INFLECTRA [Suspect]
     Active Substance: INFLIXIMAB-DYYB
     Dosage: 500 MG, CYCLIC, EVERY 4 WEEKS
     Route: 042
     Dates: start: 20180405
  6. INFLECTRA [Suspect]
     Active Substance: INFLIXIMAB-DYYB
     Dosage: 500 MG, CYCLIC, EVERY 4 WEEKS
     Route: 042
     Dates: start: 20180531
  7. INFLECTRA [Suspect]
     Active Substance: INFLIXIMAB-DYYB
     Dosage: 500 MG, CYCLIC, EVERY 4 WEEKS
     Route: 042
     Dates: start: 20180628
  8. INFLECTRA [Suspect]
     Active Substance: INFLIXIMAB-DYYB
     Dosage: 500 MG, CYCLIC, EVERY 4 WEEKS
     Route: 042
     Dates: start: 20180823
  9. METHOTREXATE (METHOTREXATE SODIUM) [Concomitant]
     Active Substance: METHOTREXATE SODIUM
     Dosage: 25 MG, WEEKLY
     Route: 058
  10. INFLECTRA [Suspect]
     Active Substance: INFLIXIMAB-DYYB
     Indication: ANKYLOSING SPONDYLITIS
     Dosage: 400 MG, CYCLIC, EVERY 4 WEEKS
     Route: 042
     Dates: start: 20170207
  11. INFLECTRA [Suspect]
     Active Substance: INFLIXIMAB-DYYB
     Dosage: 500 MG, CYCLIC, EVERY 4 WEEKS
     Route: 042
     Dates: start: 20180726

REACTIONS (15)
  - Product use issue [Unknown]
  - Facial paralysis [Recovered/Resolved]
  - Eye pain [Recovered/Resolved]
  - Erythema [Unknown]
  - Viral infection [Recovered/Resolved]
  - Peripheral swelling [Unknown]
  - Induration [Unknown]
  - Pruritus [Unknown]
  - Herpes zoster [Recovered/Resolved]
  - Arthropod sting [Unknown]
  - Drug effect incomplete [Unknown]
  - Product use issue [Unknown]
  - Therapeutic response shortened [Unknown]
  - Condition aggravated [Unknown]
  - Blood pressure fluctuation [Unknown]

NARRATIVE: CASE EVENT DATE: 20171114
